FAERS Safety Report 7002234-9 (Version None)
Quarter: 2010Q3

REPORT INFORMATION
  Report Type: 
  Country: None (occurrence: None)
  Receive Date: 20100920
  Receipt Date: 20070706
  Transmission Date: 20110219
  Serious: Yes (Other)
  Sender: FDA-Public Use
  Company Number: US-ASTRAZENECA-2006UW22436

PATIENT
  Age: 573 Month
  Sex: Male
  Weight: 82.5 kg

DRUGS (7)
  1. SEROQUEL [Suspect]
     Indication: SLEEP DISORDER
     Dosage: 100 MG - 1000 MG
     Route: 048
     Dates: start: 20020501
  2. SEROQUEL [Suspect]
     Route: 048
     Dates: start: 20030101, end: 20060101
  3. DEPAKOTE [Concomitant]
     Dosage: 250 MG - 1000 MG
     Dates: start: 20010821
  4. ZOLOFT [Concomitant]
     Dosage: 100 MG - 200 MG
     Dates: start: 20020926
  5. HALDOL [Concomitant]
     Indication: AGITATION
     Dates: start: 20040817
  6. VISTARYL [Concomitant]
     Dosage: 25 MG - 50 MG
     Dates: start: 20020627
  7. COGENTIN [Concomitant]
     Indication: EXTRAPYRAMIDAL DISORDER
     Route: 048
     Dates: start: 20040817

REACTIONS (2)
  - DIABETES MELLITUS INADEQUATE CONTROL [None]
  - TYPE 2 DIABETES MELLITUS [None]
